FAERS Safety Report 18212162 (Version 3)
Quarter: 2021Q1

REPORT INFORMATION
  Report Type: Report from Study
  Country: None (occurrence: US)
  Receive Date: 20200831
  Receipt Date: 20210216
  Transmission Date: 20210419
  Serious: Yes (Hospitalization, Other)
  Sender: FDA-Public Use
  Company Number: US-ABBVIE-20K-163-3502196-00

PATIENT
  Age: 76 Year
  Sex: Female
  Weight: 54.03 kg

DRUGS (16)
  1. HUMIRA [Suspect]
     Active Substance: ADALIMUMAB
     Route: 058
     Dates: start: 2019, end: 201907
  2. HUMIRA [Suspect]
     Active Substance: ADALIMUMAB
     Indication: PSORIATIC ARTHROPATHY
     Route: 058
     Dates: start: 2020
  3. OMEPRAZOLE. [Concomitant]
     Active Substance: OMEPRAZOLE
     Indication: GASTROOESOPHAGEAL REFLUX DISEASE
  4. CLARITIN [Concomitant]
     Active Substance: LORATADINE
     Indication: HYPERSENSITIVITY
  5. HUMIRA [Suspect]
     Active Substance: ADALIMUMAB
     Route: 058
     Dates: start: 2019, end: 201908
  6. HUMIRA [Suspect]
     Active Substance: ADALIMUMAB
     Route: 058
     Dates: start: 201909, end: 2020
  7. LATANOPROST. [Concomitant]
     Active Substance: LATANOPROST
     Indication: GLAUCOMA
  8. HUMIRA [Suspect]
     Active Substance: ADALIMUMAB
     Indication: PSORIATIC ARTHROPATHY
     Route: 058
     Dates: start: 2019, end: 201906
  9. METHOTREXATE. [Concomitant]
     Active Substance: METHOTREXATE
     Indication: PSORIATIC ARTHROPATHY
  10. FOLIC ACID. [Concomitant]
     Active Substance: FOLIC ACID
     Indication: PRODUCT USED FOR UNKNOWN INDICATION
  11. AMLODIPINE [Concomitant]
     Active Substance: AMLODIPINE BESYLATE
     Indication: HYPERTENSION
  12. DIAZEPAM. [Concomitant]
     Active Substance: DIAZEPAM
     Indication: SLEEP DISORDER THERAPY
  13. HUMIRA [Suspect]
     Active Substance: ADALIMUMAB
     Indication: RHEUMATOID ARTHRITIS
     Route: 058
     Dates: start: 20190404, end: 201905
  14. TYLENOL [Concomitant]
     Active Substance: ACETAMINOPHEN
     Indication: SPINAL PAIN
  15. TIMOLOL. [Concomitant]
     Active Substance: TIMOLOL
     Indication: GLAUCOMA
  16. VITAMIN D [Concomitant]
     Active Substance: VITAMIN D NOS
     Indication: BONE DISORDER

REACTIONS (26)
  - Syncope [Recovered/Resolved]
  - Cystitis [Recovered/Resolved]
  - Procedural haemorrhage [Recovered/Resolved]
  - Urinary tract infection [Recovered/Resolved]
  - Injection site pruritus [Recovering/Resolving]
  - Nausea [Recovered/Resolved]
  - Vaginal infection [Not Recovered/Not Resolved]
  - Sleep apnoea syndrome [Not Recovered/Not Resolved]
  - Sinusitis [Unknown]
  - Oxygen saturation decreased [Unknown]
  - Muscle spasms [Recovered/Resolved]
  - Urinary tract infection [Recovered/Resolved]
  - Respiratory disorder [Unknown]
  - Sinus congestion [Not Recovered/Not Resolved]
  - Pseudomonas infection [Recovered/Resolved]
  - Injection site rash [Recovering/Resolving]
  - Epistaxis [Recovered/Resolved]
  - Staphylococcal infection [Recovered/Resolved]
  - Facial bones fracture [Recovered/Resolved]
  - Psoriasis [Recovered/Resolved]
  - Injection site swelling [Recovering/Resolving]
  - Haemorrhage [Recovered/Resolved]
  - Bronchitis [Recovered/Resolved]
  - Fall [Recovering/Resolving]
  - Nasal septum deviation [Recovering/Resolving]
  - Nasal septum deviation [Recovered/Resolved]

NARRATIVE: CASE EVENT DATE: 2019
